FAERS Safety Report 5934926-4 (Version None)
Quarter: 2008Q4

REPORT INFORMATION
  Report Type: 
  Country: None (occurrence: None)
  Receive Date: 20081027
  Receipt Date: 20080619
  Transmission Date: 20090506
  Serious: Yes (Other)
  Sender: FDA-Public Use
  Company Number: 001#1#2008-00403

PATIENT
  Age: 44 Year
  Sex: Male

DRUGS (3)
  1. NEUPRO [Suspect]
     Indication: PARKINSONISM
     Dosage: TRANSDERMAL, 6MG/24H (6MG/24H 1 IN 1 DAY(S)); TRANSDERMAL
     Route: 062
     Dates: start: 20080401
  2. MADOPAR-62.5 (BENSERAZIDE HYDROCHLORIDE, LEVODOPA) [Concomitant]
  3. PREDNISONE [Concomitant]

REACTIONS (5)
  - ACNE [None]
  - ERYTHEMA [None]
  - MEDICATION ERROR [None]
  - PAIN OF SKIN [None]
  - PRURITUS [None]
